FAERS Safety Report 5944737-1 (Version None)
Quarter: 2008Q4

REPORT INFORMATION
  Report Type: 
  Country: None (occurrence: None)
  Receive Date: 20081107
  Receipt Date: 20081031
  Transmission Date: 20090506
  Serious: Yes (Death)
  Sender: FDA-Public Use
  Company Number: US-BRISTOL-MYERS SQUIBB COMPANY-14391320

PATIENT
  Age: 48 Year
  Sex: Female

DRUGS (4)
  1. TRIAMCINOLONE ACETONIDE [Suspect]
  2. BUPIVACAINE [Suspect]
     Dosage: 0.25 % , 2ML MIXED WITH TRAMCINOLONE
  3. MIDAZOLAM HCL [Suspect]
  4. FENTANYL [Suspect]

REACTIONS (2)
  - BRAIN HERNIATION [None]
  - CEREBELLAR INFARCTION [None]
